FAERS Safety Report 4953635-1 (Version None)
Quarter: 2006Q1

REPORT INFORMATION
  Report Type: 
  Country: None (occurrence: None)
  Receive Date: 20060324
  Receipt Date: 20050922
  Transmission Date: 20060701
  Serious: Yes (Hospitalization)
  Sender: FDA-Public Use
  Company Number: US-MERCK-0509USA03607

PATIENT
  Age: 83 Year
  Sex: Female
  Weight: 82 kg

DRUGS (1)
  1. VIOXX [Suspect]
     Route: 048
     Dates: start: 20000101, end: 20040101

REACTIONS (6)
  - ADVERSE EVENT [None]
  - CARDIAC FAILURE CONGESTIVE [None]
  - EYE INJURY [None]
  - MYOCARDIAL INFARCTION [None]
  - RENAL FAILURE [None]
  - VASCULAR INJURY [None]
